FAERS Safety Report 6395757-7 (Version None)
Quarter: 2009Q4

REPORT INFORMATION
  Report Type: 
  Country: None (occurrence: None)
  Receive Date: 20091009
  Receipt Date: 20090928
  Transmission Date: 20100525
  Serious: Yes (Hospitalization, Other)
  Sender: FDA-Public Use
  Company Number: US-TYCO HEALTHCARE/MALLINCKRODT-T200901827

PATIENT
  Sex: Male

DRUGS (3)
  1. METHADOSE [Suspect]
  2. DICLOFENAC [Suspect]
  3. FENETYLLINE [Suspect]

REACTIONS (4)
  - DRUG TOXICITY [None]
  - DYSARTHRIA [None]
  - FATIGUE [None]
  - GAIT DISTURBANCE [None]
